FAERS Safety Report 22623338 (Version 1)
Quarter: 2023Q2

REPORT INFORMATION
  Report Type: Spontaneous
  Country: CA (occurrence: CA)
  Receive Date: 20230621
  Receipt Date: 20230621
  Transmission Date: 20230722
  Serious: Yes (Other)
  Sender: FDA-Public Use
  Company Number: CA-BAYER-2023A084731

PATIENT
  Sex: Female

DRUGS (2)
  1. EYLEA [Suspect]
     Active Substance: AFLIBERCEPT
     Indication: Retinal vein occlusion
     Dosage: 2.0 MG, RIGHT EYE; SOLUTION FOR INJECTION; STRENGTH: 40MG/ML
     Dates: start: 20230606, end: 20230606
  2. PRED FORTE [Concomitant]
     Active Substance: PREDNISOLONE ACETATE
     Indication: Product used for unknown indication
     Dosage: UNK UNK, QID, RIGHT EYE

REACTIONS (5)
  - Inflammation [Unknown]
  - Pain [Recovering/Resolving]
  - Tenderness [Recovering/Resolving]
  - Burning sensation [Recovering/Resolving]
  - Vision blurred [Recovering/Resolving]

NARRATIVE: CASE EVENT DATE: 20230607
